FAERS Safety Report 6386124-0 (Version None)
Quarter: 2009Q4

REPORT INFORMATION
  Report Type: 
  Country: None (occurrence: None)
  Receive Date: 20091002
  Receipt Date: 20081204
  Transmission Date: 20100525
  Serious: No
  Sender: FDA-Public Use
  Company Number: US-ASTRAZENECA-2008UW27052

PATIENT
  Age: 65 Year
  Sex: Female
  Weight: 74.4 kg

DRUGS (5)
  1. ARIMIDEX [Suspect]
     Indication: BREAST CANCER
     Dosage: UNKNOWN
     Route: 048
     Dates: start: 20080408, end: 20080701
  2. ARIMIDEX [Suspect]
     Dosage: UNKNOWN
     Route: 048
     Dates: start: 20081130
  3. SYNTHROID [Concomitant]
  4. CALCIUM + VIT D [Concomitant]
  5. VIT C [Concomitant]

REACTIONS (2)
  - EAR DISORDER [None]
  - INCREASED APPETITE [None]
